FAERS Safety Report 9664154 (Version 1)
Quarter: 2013Q4

REPORT INFORMATION
  Report Type: Spontaneous
  Country: CN (occurrence: CN)
  Receive Date: 20131101
  Receipt Date: 20131101
  Transmission Date: 20140711
  Serious: Yes (Other)
  Sender: FDA-Public Use
  Company Number: CN-ROCHE-1296927

PATIENT
  Sex: Female

DRUGS (3)
  1. CEFTRIAXONE [Suspect]
     Indication: MASTITIS
     Dosage: IVGTT
     Route: 042
     Dates: start: 20120928, end: 20120928
  2. TINIDAZOLE [Suspect]
     Indication: MASTITIS
     Dosage: IVGTT
     Route: 042
     Dates: start: 20120928, end: 20121028
  3. GLUCOSE/SODIUM CHLORIDE [Suspect]
     Indication: MASTITIS
     Route: 065
     Dates: start: 20120928, end: 20120928

REACTIONS (1)
  - Anaphylactoid reaction [Recovered/Resolved]
